FAERS Safety Report 6129029-2 (Version None)
Quarter: 2009Q1

REPORT INFORMATION
  Report Type: 
  Country: None (occurrence: None)
  Receive Date: 20090324
  Receipt Date: 20090311
  Transmission Date: 20090719
  Serious: Yes (Hospitalization, Other)
  Sender: FDA-Public Use
  Company Number: US-ELI_LILLY_AND_COMPANY-US200903002735

PATIENT
  Sex: Male

DRUGS (8)
  1. FORTEO [Suspect]
     Indication: OSTEOPOROSIS
     Dosage: 20 UG, DAILY (1/D)
     Dates: start: 20080501, end: 20090310
  2. DILANTIN [Concomitant]
  3. PROPRANOLOL [Concomitant]
  4. VITAMIN D [Concomitant]
  5. CALCIUM                                 /N/A/ [Concomitant]
  6. ASCORBIC ACID [Concomitant]
  7. FISH OIL [Concomitant]
  8. VITAMINS [Concomitant]

REACTIONS (3)
  - CONVULSION [None]
  - FALL [None]
  - HIP FRACTURE [None]
